FAERS Safety Report 20675580 (Version 1)
Quarter: 2022Q2

REPORT INFORMATION
  Report Type: Spontaneous
  Country: US (occurrence: None)
  Receive Date: 20220405
  Receipt Date: 20220405
  Transmission Date: 20220721
  Serious: Yes (Other)
  Sender: FDA-Public Use
  Company Number: 2022A099671

PATIENT
  Age: 21969 Day
  Sex: Female
  Weight: 91.2 kg

DRUGS (15)
  1. EVUSHELD [Suspect]
     Active Substance: CILGAVIMAB\TIXAGEVIMAB
     Indication: Infection prophylaxis
     Dosage: UNK150.0MG UNKNOWN
     Route: 030
     Dates: start: 20220210
  2. EVUSHELD [Suspect]
     Active Substance: CILGAVIMAB\TIXAGEVIMAB
     Indication: COVID-19 prophylaxis
     Dosage: UNK150.0MG UNKNOWN
     Route: 030
     Dates: start: 20220210
  3. SYMBICORT [Suspect]
     Active Substance: BUDESONIDE\FORMOTEROL FUMARATE DIHYDRATE
     Dosage: 160-4,5 MCG 2 PUFFS
     Route: 055
  4. ALBUTEROL [Concomitant]
     Active Substance: ALBUTEROL
  5. ALBUTEROL\IPRATROPIUM BROMIDE [Concomitant]
     Active Substance: ALBUTEROL\IPRATROPIUM BROMIDE
  6. AZELASTINE (ASTELIN) [Concomitant]
  7. FLONASE [Concomitant]
     Active Substance: FLUTICASONE PROPIONATE
  8. DELTASONE [Concomitant]
     Active Substance: PREDNISONE
  9. LIDOCAINE [Concomitant]
     Active Substance: LIDOCAINE
  10. LEVOCETRIZINE (XYZAL) [Concomitant]
  11. ACTUATION MIST INHALER [Concomitant]
  12. NEURONTIN [Concomitant]
     Active Substance: GABAPENTIN
  13. EPINEPHRINE [Concomitant]
     Active Substance: EPINEPHRINE
  14. OMNICEF [Concomitant]
     Active Substance: CEFDINIR
  15. COMBIVENT [Concomitant]
     Active Substance: ALBUTEROL SULFATE\IPRATROPIUM BROMIDE
     Dosage: ONE PUFF TWICE A DAILY

REACTIONS (13)
  - Asthma [Recovered/Resolved]
  - Chest discomfort [Recovering/Resolving]
  - Cough [Recovering/Resolving]
  - Malaise [Recovering/Resolving]
  - Movement disorder [Recovering/Resolving]
  - Obstructive airways disorder [Recovering/Resolving]
  - Speech disorder [Recovering/Resolving]
  - Sinusitis [Recovering/Resolving]
  - Respiratory disorder [Recovering/Resolving]
  - Adverse drug reaction [Recovering/Resolving]
  - Dysphonia [Unknown]
  - Wheezing [Unknown]
  - Device ineffective [Unknown]

NARRATIVE: CASE EVENT DATE: 20220210
